FAERS Safety Report 16776104 (Version 2)
Quarter: 2020Q2

REPORT INFORMATION
  Report Type: Spontaneous
  Country: US (occurrence: US)
  Receive Date: 20190905
  Receipt Date: 20200403
  Transmission Date: 20200713
  Serious: Yes (Other)
  Sender: FDA-Public Use
  Company Number: US-GILEAD-2019-0426528

PATIENT
  Age: 32 Year
  Sex: Male
  Weight: 72.57 kg

DRUGS (47)
  1. PREDNISONE. [Concomitant]
     Active Substance: PREDNISONE
  2. ONDANSETRON [Concomitant]
     Active Substance: ONDANSETRON
  3. PENCILLIN [Concomitant]
     Active Substance: PENICILLIN
  4. HYDROCODONE/ACETAMINOPHEN [Concomitant]
     Active Substance: ACETAMINOPHEN\HYDROCODONE
  5. DOXYCYCLINE HYDROCHLORIDE [Concomitant]
     Active Substance: DOXYCYCLINE HYDROCHLORIDE
  6. ENOXAPARIN [Concomitant]
     Active Substance: ENOXAPARIN
  7. AZITHROMYCIN ANHYDROUS. [Concomitant]
     Active Substance: AZITHROMYCIN ANHYDROUS
  8. ZOSYN [Concomitant]
     Active Substance: PIPERACILLIN SODIUM\TAZOBACTAM SODIUM
  9. BACTRIM DS [Concomitant]
     Active Substance: SULFAMETHOXAZOLE\TRIMETHOPRIM
  10. LORAZEPAM. [Concomitant]
     Active Substance: LORAZEPAM
  11. VALIUM [Concomitant]
     Active Substance: DIAZEPAM
  12. PROGESTERONE. [Concomitant]
     Active Substance: PROGESTERONE
  13. CLINDAMYCIN. [Concomitant]
     Active Substance: CLINDAMYCIN
  14. DOCQLACE [Concomitant]
     Active Substance: DOCUSATE SODIUM
  15. TRUVADA [Suspect]
     Active Substance: EMTRICITABINE\TENOFOVIR DISOPROXIL FUMARATE
     Indication: HIV INFECTION
     Dosage: UNK
     Route: 048
     Dates: start: 2016, end: 2017
  16. MOTRIN [Concomitant]
     Active Substance: IBUPROFEN
  17. TORADOL [Concomitant]
     Active Substance: KETOROLAC TROMETHAMINE
  18. KEFLEX [Concomitant]
     Active Substance: CEPHALEXIN
  19. ESTRADIOL. [Concomitant]
     Active Substance: ESTRADIOL
  20. AMOXICILLIN/CLAVULANIC ACID [Concomitant]
     Active Substance: AMOXICILLIN\CLAVULANIC ACID
  21. LIDOCAINE. [Concomitant]
     Active Substance: LIDOCAINE
  22. DIPHEN [DIPHENHYDRAMINE HYDROCHLORIDE] [Concomitant]
  23. CYANOCOBALAMIN. [Concomitant]
     Active Substance: CYANOCOBALAMIN
  24. DIAZEPAM. [Concomitant]
     Active Substance: DIAZEPAM
  25. NAPROXEN. [Concomitant]
     Active Substance: NAPROXEN
  26. METRONIDAZOLE. [Concomitant]
     Active Substance: METRONIDAZOLE
  27. TRAMADOL. [Concomitant]
     Active Substance: TRAMADOL
  28. HYDROXYZINE [Concomitant]
     Active Substance: HYDROXYZINE HYDROCHLORIDE
  29. ATRIPLA [Suspect]
     Active Substance: EFAVIRENZ\EMTRICITABINE\TENOFOVIR DISOPROXIL FUMARATE
     Indication: HIV INFECTION
     Dosage: UNK
     Route: 048
     Dates: start: 2015, end: 2015
  30. PEPCID AC [Concomitant]
     Active Substance: FAMOTIDINE
  31. FLEXERIL [CEFIXIME] [Concomitant]
     Active Substance: CEFIXIME
  32. FAMOTIDINE. [Concomitant]
     Active Substance: FAMOTIDINE
  33. SERTRALINE [Concomitant]
     Active Substance: SERTRALINE HYDROCHLORIDE
  34. BACITRACIN ZINC. [Concomitant]
     Active Substance: BACITRACIN ZINC
  35. TRIUMEQ [Concomitant]
     Active Substance: ABACAVIR SULFATE\DOLUTEGRAVIR SODIUM\LAMIVUDINE
  36. PERMETHRIN. [Concomitant]
     Active Substance: PERMETHRIN
  37. BENADRYL [Concomitant]
     Active Substance: DIPHENHYDRAMINE HYDROCHLORIDE
  38. VANCOMYCIN [Concomitant]
     Active Substance: VANCOMYCIN
  39. DELESTROGEN [Concomitant]
     Active Substance: ESTRADIOL VALERATE
  40. POLYETHYLENE GLYCOL [Concomitant]
     Active Substance: POLYETHYLENE GLYCOLS
  41. GABAPENTIN. [Concomitant]
     Active Substance: GABAPENTIN
  42. GENVOYA [Concomitant]
     Active Substance: COBICISTAT\ELVITEGRAVIR\EMTRICITABINE\TENOFOVIR ALAFENAMIDE FUMARATE
  43. NORCO [Concomitant]
     Active Substance: ACETAMINOPHEN\HYDROCODONE BITARTRATE
  44. KETOROLAC [Concomitant]
     Active Substance: KETOROLAC TROMETHAMINE
  45. SPIRONOLACTONE. [Concomitant]
     Active Substance: SPIRONOLACTONE
  46. ALPRAZOLAM. [Concomitant]
     Active Substance: ALPRAZOLAM
  47. CYCLOBENZAPRINE. [Concomitant]
     Active Substance: CYCLOBENZAPRINE

REACTIONS (8)
  - Multiple fractures [Unknown]
  - Economic problem [Unknown]
  - Pain [Unknown]
  - Anxiety [Unknown]
  - Tooth loss [Recovered/Resolved]
  - Anhedonia [Unknown]
  - Bone density decreased [Recovered/Resolved]
  - Emotional distress [Unknown]

NARRATIVE: CASE EVENT DATE: 201912
